FAERS Safety Report 5377626-4 (Version None)
Quarter: 2007Q3

REPORT INFORMATION
  Report Type: 
  Country: None (occurrence: None)
  Receive Date: 20070703
  Receipt Date: 20070625
  Transmission Date: 20080115
  Serious: Yes (Other)
  Sender: FDA-Public Use
  Company Number: FR-PFIZER INC-2007021893

PATIENT
  Sex: Female
  Weight: 97 kg

DRUGS (2)
  1. LYRICA [Suspect]
     Indication: NEURALGIA
     Dosage: DAILY DOSE:450MG
     Route: 048
  2. LYRICA [Suspect]

REACTIONS (2)
  - MOVEMENT DISORDER [None]
  - WEIGHT INCREASED [None]
